FAERS Safety Report 9299959 (Version 3)
Quarter: 2014Q1

REPORT INFORMATION
  Report Type: Spontaneous
  Country: US (occurrence: US)
  Receive Date: 20130521
  Receipt Date: 20140203
  Transmission Date: 20141002
  Serious: Yes (Hospitalization, Other)
  Sender: FDA-Public Use
  Company Number: US-BAYER-2013-060345

PATIENT
  Age: 25 Year
  Sex: Female
  Weight: 63.49 kg

DRUGS (9)
  1. MIRENA [Suspect]
     Indication: CONTRACEPTION
     Dosage: 20 MCG/24HR, CONT
     Route: 015
     Dates: start: 20060518, end: 20070615
  2. MIRENA [Suspect]
     Indication: MENORRHAGIA
  3. PAXIL CR [Concomitant]
     Indication: ANXIETY
     Dosage: UNK
     Dates: start: 2000, end: 2013
  4. PAXIL CR [Concomitant]
     Indication: PANIC ATTACK
  5. VALTREX [Concomitant]
  6. ULTRAM [Concomitant]
  7. PROVERA [Concomitant]
  8. PROGESTERONE [Concomitant]
  9. BABY ASPIRIN [Concomitant]

REACTIONS (14)
  - Uterine perforation [None]
  - Injury [None]
  - Pain [None]
  - Salpingitis [None]
  - Parametric abscess [None]
  - Abdominal pain [None]
  - Nausea [None]
  - Vomiting [None]
  - Emotional distress [None]
  - Infertility female [None]
  - Depression [Not Recovered/Not Resolved]
  - Anxiety [Not Recovered/Not Resolved]
  - Panic attack [Not Recovered/Not Resolved]
  - Fear of disease [Not Recovered/Not Resolved]
